FAERS Safety Report 5952096-3 (Version None)
Quarter: 2008Q4

REPORT INFORMATION
  Report Type: 
  Country: None (occurrence: None)
  Receive Date: 20081113
  Receipt Date: 20080331
  Transmission Date: 20090506
  Serious: No
  Sender: FDA-Public Use
  Company Number: A0721728A

PATIENT
  Age: 57 Year
  Sex: Male

DRUGS (1)
  1. COREG [Suspect]
     Dosage: 25MG TWICE PER DAY
     Route: 048

REACTIONS (2)
  - ERECTILE DYSFUNCTION [None]
  - QUALITY OF LIFE DECREASED [None]
